FAERS Safety Report 21092292 (Version 2)
Quarter: 2025Q2

REPORT INFORMATION
  Report Type: Spontaneous
  Country: IT (occurrence: IT)
  Receive Date: 20220718
  Receipt Date: 20250531
  Transmission Date: 20250716
  Serious: Yes (Other)
  Sender: AUROBINDO
  Company Number: IT-DSJP-DSE-2022-122931

PATIENT
  Age: 41 Year
  Sex: Female

DRUGS (2)
  1. AMIODARONE [Interacting]
     Active Substance: AMIODARONE
     Indication: Arrhythmia prophylaxis
     Route: 065
  2. EDOXABAN [Interacting]
     Active Substance: EDOXABAN
     Indication: Anticoagulant therapy
     Route: 065

REACTIONS (3)
  - Anaemia [Recovered/Resolved]
  - Intermenstrual bleeding [Recovered/Resolved]
  - Drug interaction [Recovered/Resolved]
